FAERS Safety Report 14915076 (Version 1)
Quarter: 2018Q2

REPORT INFORMATION
  Report Type: Spontaneous
  Country: US (occurrence: US)
  Receive Date: 20180518
  Receipt Date: 20180518
  Transmission Date: 20180711
  Serious: Yes (Death, Life-Threatening, Hospitalization, Other)
  Sender: FDA-Public Use
  Company Number: US-AMGEN-USASP2018065621

PATIENT
  Age: 8 Year
  Sex: Female

DRUGS (4)
  1. FILGRASTIM [Suspect]
     Active Substance: FILGRASTIM
     Dosage: 3.2 MUG/KG, QD (300 MUG)
     Route: 065
  2. FILGRASTIM [Suspect]
     Active Substance: FILGRASTIM
     Dosage: 3.5 MUG/KG, QD (300 MUG)
     Route: 065
  3. FILGRASTIM [Suspect]
     Active Substance: FILGRASTIM
     Indication: NEUTROPENIA
     Dosage: 4.6 MUG/KG, QD (150 MUG)
     Route: 065
  4. COTRIMOXAZOLE [Concomitant]
     Active Substance: SULFAMETHOXAZOLE\TRIMETHOPRIM
     Indication: PROPHYLAXIS
     Dosage: UNK

REACTIONS (24)
  - Cardiomegaly [Unknown]
  - Erythema nodosum [Unknown]
  - Purulent discharge [Unknown]
  - Skin lesion [Unknown]
  - Mouth ulceration [Unknown]
  - Gingival ulceration [Unknown]
  - Pericardial effusion [Unknown]
  - Rectal fissure [Unknown]
  - Pyrexia [Unknown]
  - Acute myeloid leukaemia [Unknown]
  - Inflammatory bowel disease [Unknown]
  - Pharyngeal haemorrhage [Unknown]
  - Ventricular hypertrophy [Unknown]
  - Anal fissure [Unknown]
  - Viral upper respiratory tract infection [Unknown]
  - Respiratory distress [Unknown]
  - Pancytopenia [Unknown]
  - Respiratory failure [Unknown]
  - Pulmonary oedema [Unknown]
  - Cardiac arrest [Fatal]
  - Off label use [Unknown]
  - Lymphadenopathy [Unknown]
  - Aphthous ulcer [Unknown]
  - Vomiting [Unknown]
